FAERS Safety Report 13854014 (Version 2)
Quarter: 2024Q4

REPORT INFORMATION
  Report Type: Spontaneous
  Country: SE (occurrence: SE)
  Receive Date: 20170810
  Receipt Date: 20241226
  Transmission Date: 20250115
  Serious: Yes (Other)
  Sender: ALKEM
  Company Number: None

PATIENT
  Age: 49 Year
  Sex: Female

DRUGS (11)
  1. AZATHIOPRINE [Suspect]
     Active Substance: AZATHIOPRINE
     Indication: Skin infection
     Dosage: 100 MILLIGRAM, QD
     Route: 065
  2. MYCOPHENOLATE MOFETIL [Suspect]
     Active Substance: MYCOPHENOLATE MOFETIL
     Indication: Nephritic syndrome
     Dosage: 1 GRAM, QD
     Route: 065
  3. METHYLPREDNISOLONE [Suspect]
     Active Substance: METHYLPREDNISOLONE
     Indication: Henoch-Schonlein purpura nephritis
     Dosage: 500 MILLIGRAM, BID (X 2)
     Route: 065
  4. BETAMETHASONE [Suspect]
     Active Substance: BETAMETHASONE
     Indication: Skin infection
     Dosage: 1.5 MG/DAY (AT ADMISSION)
     Route: 048
  5. BETAMETHASONE [Suspect]
     Active Substance: BETAMETHASONE
     Dosage: 8 MILLIGRAM/KILOGRAM (MAX)
     Route: 042
  6. BETAMETHASONE [Suspect]
     Active Substance: BETAMETHASONE
     Dosage: 0.1 MILLIGRAM/KILOGRAM, QD (PER DAY)
     Route: 048
  7. BETAMETHASONE [Suspect]
     Active Substance: BETAMETHASONE
     Dosage: UNK (TAPERED OVER 19 MONTHS)
     Route: 065
  8. BETAMETHASONE [Suspect]
     Active Substance: BETAMETHASONE
     Dosage: UNK (LOW DOSE WAS RESTARTED)
     Route: 065
  9. METHOTREXATE [Concomitant]
     Active Substance: METHOTREXATE
     Indication: Skin infection
     Dosage: UNK
     Route: 065
  10. RITUXIMAB [Concomitant]
     Active Substance: RITUXIMAB
     Indication: Nephritic syndrome
     Dosage: 600 MG, QID (326 MG/M2) (2400 MG EVERY 1 DAY)
     Route: 065
  11. RITUXIMAB [Concomitant]
     Active Substance: RITUXIMAB
     Dosage: 500 MG, QD (272 MG/M2)
     Route: 065

REACTIONS (3)
  - Blood creatinine increased [Recovering/Resolving]
  - Nephrotic syndrome [Unknown]
  - Gastrointestinal disorder [Unknown]
